FAERS Safety Report 18986567 (Version 1)
Quarter: 2021Q1

REPORT INFORMATION
  Report Type: Spontaneous
  Country: RU (occurrence: RU)
  Receive Date: 20210309
  Receipt Date: 20210309
  Transmission Date: 20210420
  Serious: Yes (Death, Hospitalization)
  Sender: FDA-Public Use
  Company Number: RU-MYLANLABS-2021M1014497

PATIENT
  Age: 62 Year
  Sex: Male

DRUGS (18)
  1. FLUTICASONE PROPIONATE AND SALMETEROL [Suspect]
     Active Substance: FLUTICASONE PROPIONATE\SALMETEROL XINAFOATE
     Indication: ASTHMA
     Dosage: 4 DOSAGE FORM, QD
     Route: 055
  2. IPRATROPIUM BROMIDE. [Suspect]
     Active Substance: IPRATROPIUM BROMIDE
     Indication: ANTIINFLAMMATORY THERAPY
  3. CIPROFLOXACIN. [Concomitant]
     Active Substance: CIPROFLOXACIN
     Indication: PNEUMONIA KLEBSIELLA
     Dosage: 800 MILLIGRAM, QD
     Route: 042
  4. PREDNISOLONE. [Concomitant]
     Active Substance: PREDNISOLONE
     Indication: ANTIINFLAMMATORY THERAPY
     Dosage: 10 MILLIGRAM, QD....
     Route: 048
  5. BUDESONIDE. [Suspect]
     Active Substance: BUDESONIDE
     Indication: ASTHMA
     Dosage: 2000 MICROGRAM, QD
     Route: 065
  6. BUDESONIDE. [Suspect]
     Active Substance: BUDESONIDE
     Indication: ANTIINFLAMMATORY THERAPY
  7. TIOTROPIUM BROMIDE [Suspect]
     Active Substance: TIOTROPIUM BROMIDE
     Indication: ASTHMA
     Dosage: 18 MICROGRAM, QD
     Route: 065
  8. FENOTEROL [Suspect]
     Active Substance: FENOTEROL
     Indication: ANTIINFLAMMATORY THERAPY
  9. SALMETEROL/FLUTICASON ORION [Suspect]
     Active Substance: FLUTICASONE PROPIONATE\SALMETEROL XINAFOATE
     Indication: ASTHMA
     Dosage: 2 DOSAGE FORM, BID
     Route: 065
  10. CEFOPERAZONE [Suspect]
     Active Substance: CEFOPERAZONE
     Indication: PNEUMONIA KLEBSIELLA
     Dosage: 4 GRAM, QD
     Route: 042
  11. PREDNISOLONE. [Concomitant]
     Active Substance: PREDNISOLONE
     Indication: ANTIINFLAMMATORY THERAPY
     Dosage: 150 MILLIGRAM
     Route: 042
  12. PREDNISOLONE. [Concomitant]
     Active Substance: PREDNISOLONE
     Indication: EOSINOPHILIC GRANULOMATOSIS WITH POLYANGIITIS
     Dosage: 30 MILLIGRAM
     Route: 048
  13. IPRATROPIUM BROMIDE. [Suspect]
     Active Substance: IPRATROPIUM BROMIDE
     Indication: ASTHMA
     Dosage: NEBULISED
     Route: 055
  14. CEFTRIAXONE. [Concomitant]
     Active Substance: CEFTRIAXONE
     Indication: PNEUMONIA KLEBSIELLA
     Dosage: 2 GRAM, QD
     Route: 042
  15. PREDNISOLONE. [Concomitant]
     Active Substance: PREDNISOLONE
     Indication: EOSINOPHILIC GRANULOMATOSIS WITH POLYANGIITIS
     Dosage: 300 MILLIGRAM
     Route: 042
  16. METHOTREXATE. [Concomitant]
     Active Substance: METHOTREXATE
     Indication: EOSINOPHILIC GRANULOMATOSIS WITH POLYANGIITIS
     Dosage: 25 MILLIGRAM, QW
     Route: 065
  17. AMIKACIN. [Suspect]
     Active Substance: AMIKACIN
     Indication: PNEUMONIA KLEBSIELLA
     Dosage: 1 GRAM, QD
     Route: 042
  18. FENOTEROL [Suspect]
     Active Substance: FENOTEROL
     Indication: ASTHMA
     Dosage: UNK
     Route: 065

REACTIONS (1)
  - Drug ineffective [Fatal]
